FAERS Safety Report 7796537 (Version 4)
Quarter: 2015Q4

REPORT INFORMATION
  Report Type: Spontaneous
  Country: US (occurrence: US)
  Receive Date: 20110202
  Receipt Date: 20151217
  Transmission Date: 20160305
  Serious: Yes (Hospitalization, Disabling, Other)
  Sender: FDA-Public Use
  Company Number: US-ASTRAZENECA-2010SE51674

PATIENT
  Age: 17041 Day
  Sex: Male
  Weight: 74.8 kg

DRUGS (7)
  1. MULTIVITAMIN [Concomitant]
     Active Substance: VITAMINS
     Dosage: DAILY
     Route: 048
  2. VICODIN ES [Concomitant]
     Active Substance: ACETAMINOPHEN\HYDROCODONE BITARTRATE
  3. HYDROCODONE [Concomitant]
     Active Substance: HYDROCODONE
     Indication: PAIN
     Dosage: AS REQUIRED
     Route: 048
  4. CRESTOR [Suspect]
     Active Substance: ROSUVASTATIN CALCIUM
     Indication: BLOOD CHOLESTEROL ABNORMAL
     Route: 048
  5. ALLEGRA-D [Concomitant]
     Active Substance: FEXOFENADINE\PSEUDOEPHEDRINE
     Indication: MULTIPLE ALLERGIES
     Dosage: DAILY
     Route: 048
  6. NEXIUM [Suspect]
     Active Substance: ESOMEPRAZOLE MAGNESIUM
     Indication: GASTROOESOPHAGEAL REFLUX DISEASE
     Route: 048
  7. ATENOLOL. [Suspect]
     Active Substance: ATENOLOL
     Indication: BLOOD PRESSURE ABNORMAL
     Route: 048

REACTIONS (10)
  - Brain injury [Unknown]
  - Amnesia [Unknown]
  - Gastrooesophageal reflux disease [Unknown]
  - Eye movement disorder [Unknown]
  - Subdural haematoma [Unknown]
  - Rotator cuff syndrome [Unknown]
  - Balance disorder [Unknown]
  - Head injury [Unknown]
  - Cognitive disorder [Unknown]
  - Body height decreased [Unknown]

NARRATIVE: CASE EVENT DATE: 20021009
